FAERS Safety Report 9196891 (Version 2)
Quarter: 2013Q2

REPORT INFORMATION
  Report Type: Spontaneous
  Country: US (occurrence: US)
  Receive Date: 20130328
  Receipt Date: 20130409
  Transmission Date: 20140414
  Serious: Yes (Other)
  Sender: FDA-Public Use
  Company Number: US-ROCHE-1027706

PATIENT
  Sex: Female
  Weight: 52.21 kg

DRUGS (4)
  1. ACCUTANE [Suspect]
     Indication: ACNE
     Route: 065
     Dates: start: 1991, end: 1992
  2. ACCUTANE [Suspect]
     Route: 065
     Dates: start: 199201, end: 199210
  3. ACCUTANE [Suspect]
     Route: 065
     Dates: start: 1994, end: 1995
  4. YASMIN [Concomitant]

REACTIONS (7)
  - Colitis ulcerative [Unknown]
  - Crohn^s disease [Unknown]
  - Inflammatory bowel disease [Unknown]
  - Depression [Unknown]
  - Large intestine polyp [Unknown]
  - Osteopenia [Unknown]
  - Episcleritis [Unknown]
